FAERS Safety Report 21350769 (Version 2)
Quarter: 2022Q4

REPORT INFORMATION
  Report Type: Spontaneous
  Country: DE (occurrence: DE)
  Receive Date: 20220919
  Receipt Date: 20221018
  Transmission Date: 20230113
  Serious: Yes (Other)
  Sender: FDA-Public Use
  Company Number: DE-NOVARTISPH-NVSC2022DE211065

PATIENT
  Sex: Female

DRUGS (16)
  1. SIPONIMOD [Suspect]
     Active Substance: SIPONIMOD
     Indication: Relapsing multiple sclerosis
     Dosage: UNK
     Route: 065
     Dates: start: 20200602
  2. OCRELIZUMAB [Suspect]
     Active Substance: OCRELIZUMAB
     Indication: Relapsing multiple sclerosis
     Dosage: 300 MG
     Route: 042
     Dates: start: 20180522, end: 20180605
  3. OCRELIZUMAB [Suspect]
     Active Substance: OCRELIZUMAB
     Dosage: 600 MG (MOST RECENT DOSE RECEIVED ON 19 AUG 2019)
     Route: 042
     Dates: start: 20190109
  4. PREDNISOLONE [Concomitant]
     Active Substance: PREDNISOLONE
     Indication: Product used for unknown indication
     Dosage: 100 MG, QD
     Route: 065
     Dates: start: 20180522, end: 20180522
  5. RANITIDINE HYDROCHLORIDE [Concomitant]
     Active Substance: RANITIDINE HYDROCHLORIDE
     Indication: Product used for unknown indication
     Dosage: 300 MG, QD
     Route: 065
     Dates: start: 20180522, end: 20180522
  6. RANITIDINE HYDROCHLORIDE [Concomitant]
     Active Substance: RANITIDINE HYDROCHLORIDE
     Dosage: 300 MG, QD
     Route: 065
     Dates: start: 20180604, end: 20180605
  7. RANITIDINE HYDROCHLORIDE [Concomitant]
     Active Substance: RANITIDINE HYDROCHLORIDE
     Dosage: 300 MG, QD
     Route: 065
     Dates: start: 20190108, end: 20190109
  8. DIMETHINDENE [Concomitant]
     Active Substance: DIMETHINDENE
     Indication: Product used for unknown indication
     Dosage: 1 MG, QD
     Route: 065
     Dates: start: 20180521, end: 20180522
  9. DIMETHINDENE [Concomitant]
     Active Substance: DIMETHINDENE
     Dosage: 1 MG, QD
     Route: 065
     Dates: start: 20180604, end: 20180605
  10. DIMETHINDENE [Concomitant]
     Active Substance: DIMETHINDENE
     Dosage: 1 MG, QD
     Route: 065
     Dates: start: 20190108, end: 20190109
  11. DIMETHINDENE [Concomitant]
     Active Substance: DIMETHINDENE
     Dosage: 1 MG, QD
     Route: 065
     Dates: start: 20190818, end: 20190819
  12. BACLOFEN [Concomitant]
     Active Substance: BACLOFEN
     Indication: Muscle spasticity
     Dosage: 10 MG, QD
     Route: 065
     Dates: start: 20210205, end: 20210216
  13. DALFAMPRIDINE [Concomitant]
     Active Substance: DALFAMPRIDINE
     Indication: Muscle spasticity
     Dosage: 10 MG, QD
     Route: 065
     Dates: start: 2014
  14. PREDNISOLONE [Concomitant]
     Active Substance: PREDNISOLONE
     Indication: Product used for unknown indication
     Dosage: 100 MG, QD
     Route: 065
     Dates: start: 20180605, end: 20180605
  15. PREDNISOLONE [Concomitant]
     Active Substance: PREDNISOLONE
     Dosage: 50 MG, BID
     Route: 065
     Dates: start: 20190109, end: 20190109
  16. PREDNISOLONE [Concomitant]
     Active Substance: PREDNISOLONE
     Dosage: 100 MG, QD
     Route: 065
     Dates: start: 20190819, end: 20190819

REACTIONS (1)
  - Breast cancer female [Recovered/Resolved]
